FAERS Safety Report 10314317 (Version 2)
Quarter: 2014Q3

REPORT INFORMATION
  Report Type: Spontaneous
  Country: US (occurrence: US)
  Receive Date: 20140718
  Receipt Date: 20140718
  Transmission Date: 20150326
  Serious: Yes (Death, Hospitalization)
  Sender: FDA-Public Use
  Company Number: US-GLAXOSMITHKLINE-B0717823A

PATIENT
  Age: 60 Year
  Sex: Female

DRUGS (1)
  1. AVANDIA [Suspect]
     Active Substance: ROSIGLITAZONE MALEATE
     Indication: DIABETES MELLITUS
     Dosage: 4MG TWICE PER DAY
     Route: 048
     Dates: start: 2002

REACTIONS (8)
  - Cardiac arrest [Fatal]
  - Ventricular tachycardia [Fatal]
  - Chronic obstructive pulmonary disease [Unknown]
  - Spinal compression fracture [Unknown]
  - Arteriosclerosis coronary artery [Fatal]
  - Ischaemic cardiomyopathy [Unknown]
  - Arrhythmia [Fatal]
  - Cardiac failure congestive [Unknown]

NARRATIVE: CASE EVENT DATE: 2007
